FAERS Safety Report 10460342 (Version 1)
Quarter: 2014Q3

REPORT INFORMATION
  Report Type: Spontaneous
  Country: US (occurrence: US)
  Receive Date: 20140917
  Receipt Date: 20140917
  Transmission Date: 20150326
  Serious: No
  Sender: FDA-Public Use
  Company Number: US-PFIZER INC-2014254935

PATIENT
  Age: 70 Year
  Sex: Male
  Weight: 86.17 kg

DRUGS (2)
  1. LIPITOR [Suspect]
     Active Substance: ATORVASTATIN CALCIUM
     Indication: BLOOD CHOLESTEROL INCREASED
     Dosage: 20MG (1 TABLET) ONCE DAILY
     Route: 048
     Dates: end: 20140825
  2. TYLENOL / CODEINE [Concomitant]
     Indication: BACK PAIN
     Dosage: HALF A TABLET AS NEEDED

REACTIONS (3)
  - Myalgia [Recovering/Resolving]
  - Arthralgia [Recovering/Resolving]
  - Fat tissue increased [Recovered/Resolved]
